FAERS Safety Report 8099853-8 (Version None)
Quarter: 2012Q1

REPORT INFORMATION
  Report Type: 
  Country: None (occurrence: None)
  Receive Date: 20120129
  Receipt Date: 20111010
  Transmission Date: 20120608
  Serious: No
  Sender: FDA-Public Use
  Company Number: US-ABBOTT-11P-163-0862666-00

PATIENT
  Age: 29 Year
  Sex: Female

DRUGS (5)
  1. DHA BALANCE [Concomitant]
     Indication: VITAMIN SUPPLEMENTATION
     Dosage: 1 TABLET
  2. APRISO [Concomitant]
     Indication: CROHN'S DISEASE
     Dosage: IN MORNING
  3. HUMIRA [Suspect]
     Indication: CROHN'S DISEASE
     Dates: start: 20110812
  4. BUDESONIDE [Concomitant]
     Indication: PRODUCT USED FOR UNKNOWN INDICATION
  5. MIRECETT [Concomitant]
     Indication: CONTRACEPTION

REACTIONS (1)
  - INJECTION SITE PAIN [None]
